FAERS Safety Report 7003748-8 (Version None)
Quarter: 2010Q3

REPORT INFORMATION
  Report Type: 
  Country: None (occurrence: None)
  Receive Date: 20100920
  Receipt Date: 20091221
  Transmission Date: 20110219
  Serious: No
  Sender: FDA-Public Use
  Company Number: US-WYE-H12149509

PATIENT
  Sex: Male
  Weight: 64.47 kg

DRUGS (5)
  1. PANTOPRAZOLE [Suspect]
     Indication: GASTROOESOPHAGEAL REFLUX DISEASE
     Route: 048
     Dates: start: 20090101
  2. OXYBUTYNIN [Concomitant]
  3. RANITIDINE [Concomitant]
  4. CALCIUM [Concomitant]
  5. LIPITOR [Concomitant]

REACTIONS (3)
  - BONE DENSITY DECREASED [None]
  - DECREASED APPETITE [None]
  - WEIGHT DECREASED [None]
